FAERS Safety Report 5623415-2 (Version None)
Quarter: 2008Q1

REPORT INFORMATION
  Report Type: 
  Country: None (occurrence: None)
  Receive Date: 20080212
  Receipt Date: 20080205
  Transmission Date: 20080703
  Serious: Yes (Other)
  Sender: FDA-Public Use
  Company Number: FR-PFIZER INC-2008012119

PATIENT
  Age: 38 Year
  Sex: Female

DRUGS (2)
  1. CHANTIX [Suspect]
     Indication: SMOKING CESSATION THERAPY
  2. EFFEXOR XR [Concomitant]

REACTIONS (3)
  - ADVERSE DRUG REACTION [None]
  - DEPRESSION [None]
  - PARANOIA [None]
